FAERS Safety Report 5231761-X (Version None)
Quarter: 2007Q1

REPORT INFORMATION
  Report Type: 
  Country: None (occurrence: None)
  Receive Date: 20070206
  Receipt Date: 20070129
  Transmission Date: 20070707
  Serious: Yes (Hospitalization)
  Sender: FDA-Public Use
  Company Number: DK-BOEHRINGER INGELHEIM PHARMACEUTICALS, INC.-2007-SW-00043DB

PATIENT
  Sex: Female

DRUGS (7)
  1. SIFROL TAB. 0.7 MG [Suspect]
     Indication: PARKINSON'S DISEASE
  2. TERBASMIN [Concomitant]
     Route: 055
  3. PULMICORT [Concomitant]
     Route: 055
  4. SELEGILIN [Concomitant]
  5. AMANTADINE HCL [Concomitant]
  6. AMITRIPTYLINE HCL [Concomitant]
  7. DOLOL [Concomitant]
     Indication: BACK PAIN

REACTIONS (4)
  - CONCUSSION [None]
  - RETROGRADE AMNESIA [None]
  - ROAD TRAFFIC ACCIDENT [None]
  - SUDDEN ONSET OF SLEEP [None]
